FAERS Safety Report 9445036 (Version 1)
Quarter: 2013Q3

REPORT INFORMATION
  Report Type: Spontaneous
  Country: US (occurrence: US)
  Receive Date: 20130807
  Receipt Date: 20130807
  Transmission Date: 20140515
  Serious: Yes (Hospitalization, Other)
  Sender: FDA-Public Use
  Company Number: US-UCBSA-086981

PATIENT
  Age: 26 Year
  Sex: Female

DRUGS (4)
  1. KEPPRA XR [Suspect]
     Indication: CONVULSION
     Dosage: STRENGTH: 500 MG
  2. ONFI [Concomitant]
     Dosage: UNKNOWN DOSE
  3. ZONEGRAN [Concomitant]
     Dosage: UNKNOWN DOSE
  4. POTIGA [Concomitant]
     Dosage: UNKNOWN DOSE

REACTIONS (3)
  - Anxiety [Recovering/Resolving]
  - Drug interaction [Recovering/Resolving]
  - Vagal nerve stimulator implantation [Recovering/Resolving]
